FAERS Safety Report 8075690-5 (Version None)
Quarter: 2012Q1

REPORT INFORMATION
  Report Type: 
  Country: None (occurrence: None)
  Receive Date: 20120127
  Receipt Date: 20120120
  Transmission Date: 20120608
  Serious: Yes (Hospitalization)
  Sender: FDA-Public Use
  Company Number: CH-ASTELLAS-2012EU000533

PATIENT
  Age: 14 Month
  Sex: Male

DRUGS (10)
  1. URSO FALK [Concomitant]
     Dosage: 100 MG, BID
     Route: 065
  2. PENTAMIDINE [Concomitant]
     Dosage: 65 MG, UID/QD
     Route: 042
     Dates: start: 20111220, end: 20111220
  3. VANCOMYCIN HCL [Concomitant]
     Dosage: 190 MG, UNKNOWN/D
     Route: 042
     Dates: start: 20111215, end: 20111221
  4. ATOVAQUONE [Concomitant]
     Dosage: 150 MG, UNKNOWN/D
     Route: 048
     Dates: start: 20111215, end: 20111219
  5. MEROPENEM [Concomitant]
     Dosage: 450 MG, UNKNOWN/D
     Route: 042
     Dates: start: 20111215, end: 20111221
  6. SOLU-CORTEF [Concomitant]
     Dosage: 50 MG/KG, UNKNOWN/D
     Route: 042
     Dates: start: 20111212, end: 20111220
  7. PROGRAF [Suspect]
     Indication: LIVER TRANSPLANT
     Dosage: 1 MG, BID
     Route: 048
     Dates: start: 20110801
  8. BACTRIM DS [Suspect]
     Dosage: 6 MG/KG, UNKNOWN/D
     Route: 048
     Dates: start: 20110801
  9. VALCYTE [Suspect]
     Dosage: 15 MG/KG, UID/QD
     Route: 048
     Dates: start: 20110801, end: 20111219
  10. ORANOL [Concomitant]
     Dosage: 6 DROPS, UID/QD
     Route: 065

REACTIONS (2)
  - PANCYTOPENIA [None]
  - LACTIC ACIDOSIS [None]
